FAERS Safety Report 8468191-3 (Version None)
Quarter: 2012Q2

REPORT INFORMATION
  Report Type: 
  Country: None (occurrence: None)
  Receive Date: 20120626
  Receipt Date: 20120611
  Transmission Date: 20120825
  Serious: Yes (Hospitalization)
  Sender: FDA-Public Use
  Company Number: JP-ROCHE-1063644

PATIENT
  Sex: Male
  Weight: 65 kg

DRUGS (18)
  1. OMEPRAZOLE [Concomitant]
     Indication: PROPHYLAXIS AGAINST GASTROINTESTINAL ULCER
     Route: 048
  2. TEGRETOL [Concomitant]
     Indication: BIPOLAR I DISORDER
     Route: 048
  3. PREDONINE [Concomitant]
     Indication: STILL'S DISEASE ADULT ONSET
     Route: 048
     Dates: start: 20100415, end: 20100812
  4. MAGMITT [Concomitant]
     Indication: CONSTIPATION
     Route: 048
  5. PREDONINE [Concomitant]
     Route: 048
     Dates: start: 20100813, end: 20100909
  6. PREDONINE [Concomitant]
     Route: 048
     Dates: start: 20100910, end: 20100923
  7. NITRAZEPAM [Concomitant]
     Indication: BIPOLAR I DISORDER
     Route: 048
  8. RHYTHMY [Concomitant]
     Indication: BIPOLAR I DISORDER
     Route: 048
  9. PREDONINE [Concomitant]
     Route: 048
     Dates: start: 20101029
  10. DEPAKENE [Concomitant]
     Indication: BIPOLAR I DISORDER
     Route: 048
  11. ACTEMRA [Suspect]
     Route: 041
     Dates: start: 20110818, end: 20120312
  12. PREDONINE [Concomitant]
     Route: 048
     Dates: start: 20100924, end: 20101028
  13. ACTEMRA [Suspect]
     Indication: STILL'S DISEASE ADULT ONSET
     Route: 041
     Dates: start: 20110628, end: 20110721
  14. LOXONIN [Concomitant]
     Indication: STILL'S DISEASE ADULT ONSET
     Route: 048
  15. BAKTAR [Concomitant]
     Indication: ANTIFUNGAL PROPHYLAXIS
     Dosage: 1DF 2/DAY
     Route: 048
  16. BONOTEO [Concomitant]
     Indication: PROPHYLAXIS
     Route: 048
  17. LITHIUM CARBONATE [Concomitant]
     Indication: BIPOLAR I DISORDER
     Route: 048
  18. DEPAKENE [Concomitant]
     Indication: BIPOLAR I DISORDER
     Route: 048

REACTIONS (4)
  - CARDIAC FAILURE [None]
  - ATRIAL FIBRILLATION [None]
  - SPINAL COLUMN STENOSIS [None]
  - CARDIOMYOPATHY [None]
